FAERS Safety Report 7168333-6 (Version None)
Quarter: 2010Q4

REPORT INFORMATION
  Report Type: 
  Country: None (occurrence: None)
  Receive Date: 20101216
  Receipt Date: 20101210
  Transmission Date: 20110411
  Serious: Yes (Other)
  Sender: FDA-Public Use
  Company Number: AU-ABBOTT-10P-008-0690793-00

PATIENT

DRUGS (1)
  1. HUMIRA [Suspect]
     Indication: PSORIASIS
     Dates: start: 20100701

REACTIONS (4)
  - EPISTAXIS [None]
  - ILL-DEFINED DISORDER [None]
  - MEAN CELL VOLUME DECREASED [None]
  - RED BLOOD CELL COUNT INCREASED [None]
